FAERS Safety Report 14165574 (Version 2)
Quarter: 2017Q4

REPORT INFORMATION
  Report Type: Spontaneous
  Country: FR (occurrence: FR)
  Receive Date: 20171107
  Receipt Date: 20171110
  Transmission Date: 20180321
  Serious: Yes (Life-Threatening, Hospitalization, Other)
  Sender: FDA-Public Use
  Company Number: FR-PFIZER INC-2017472641

PATIENT
  Age: 56 Year
  Sex: Female

DRUGS (2)
  1. IRINOTECAN HCL [Suspect]
     Active Substance: IRINOTECAN HYDROCHLORIDE
     Indication: ALVEOLAR RHABDOMYOSARCOMA
     Dosage: 50 MG/M2, DAILY
     Route: 042
  2. TEMOZOLOMIDE. [Suspect]
     Active Substance: TEMOZOLOMIDE
     Indication: ALVEOLAR RHABDOMYOSARCOMA
     Dosage: 125 MG/M2, DAILY
     Route: 048

REACTIONS (9)
  - Septic shock [Unknown]
  - Dehydration [Unknown]
  - Anaemia [Unknown]
  - Vomiting [Unknown]
  - Neutropenia [Recovered/Resolved]
  - Acute kidney injury [Unknown]
  - Thrombocytopenia [Unknown]
  - Hepatocellular injury [Unknown]
  - Diarrhoea [Recovered/Resolved]
